FAERS Safety Report 6306363-4 (Version None)
Quarter: 2009Q3

REPORT INFORMATION
  Report Type: 
  Country: None (occurrence: None)
  Receive Date: 20090810
  Receipt Date: 20090723
  Transmission Date: 20100115
  Serious: Yes (Hospitalization)
  Sender: FDA-Public Use
  Company Number: 2009001782

PATIENT
  Age: 63 Year
  Sex: Male
  Weight: 67.8 kg

DRUGS (10)
  1. ERLOTINIB (ERLOTINIB) (TABLET) (ERLOTINIB) [Suspect]
     Indication: NON-SMALL CELL LUNG CANCER
     Dosage: 100 MG,QD),ORAL
     Route: 048
     Dates: start: 20090319
  2. CP-751,871 (INJECTION FOR INFUSION) [Suspect]
     Indication: NON-SMALL CELL LUNG CANCER
     Dosage: (720 MG), INTRAVENOUS
     Route: 042
     Dates: start: 20090319
  3. SIMVASTATIN [Concomitant]
  4. METFORMIN HCL [Concomitant]
  5. ASPIRIN [Concomitant]
  6. CO-CODAMOL(PANADEINE CO) [Concomitant]
  7. LOPERAMIDE (LOPERAMIDE) [Concomitant]
  8. METOCLOPRAMIDE [Concomitant]
  9. AQUEOUS CREAM (AQUEOUS CREAM) [Concomitant]
  10. ORAMORPH SR [Concomitant]

REACTIONS (1)
  - GASTRIC ULCER [None]
